FAERS Safety Report 10006337 (Version 3)
Quarter: 2014Q3

REPORT INFORMATION
  Report Type: Spontaneous
  Country: JP (occurrence: JP)
  Receive Date: 20140313
  Receipt Date: 20140717
  Transmission Date: 20150326
  Serious: Yes (Disabling)
  Sender: FDA-Public Use
  Company Number: PHHY2014JP030012

PATIENT
  Age: 4 Year
  Sex: Male
  Weight: 16 kg

DRUGS (11)
  1. DECADRON [Suspect]
     Active Substance: DEXAMETHASONE
     Indication: NERVOUS SYSTEM DISORDER
     Dosage: 0.4 MG, UNK
     Route: 042
     Dates: start: 20120815, end: 20121001
  2. URSO [Concomitant]
     Active Substance: URSODIOL
     Indication: GRAFT VERSUS HOST DISEASE IN LIVER
     Dosage: 40 MG, UNK
     Route: 048
     Dates: start: 20120719
  3. PREDONINE [Suspect]
     Active Substance: PREDNISOLONE\PREDNISOLONE ACETATE\PREDNISOLONE SODIUM SUCCINATE
     Indication: PROPHYLAXIS AGAINST GRAFT VERSUS HOST DISEASE
     Dosage: 45 MG, DAILY
     Dates: start: 20120822
  4. BAKTAR [Concomitant]
     Active Substance: SULFAMETHOXAZOLE\TRIMETHOPRIM
     Indication: INFECTION PROPHYLAXIS
     Dosage: 0.2 G, UNK
     Route: 048
     Dates: start: 20120622
  5. DECADRON [Suspect]
     Active Substance: DEXAMETHASONE
     Indication: PROPHYLAXIS AGAINST GRAFT VERSUS HOST DISEASE
     Dosage: 0.6 MG, DAILY
     Route: 048
     Dates: start: 20121001, end: 20130810
  6. TASIGNA [Suspect]
     Active Substance: NILOTINIB
     Indication: OFF LABEL USE
  7. PROGRAF [Concomitant]
     Active Substance: TACROLIMUS\TACROLIMUS ANHYDROUS
     Indication: PROPHYLAXIS AGAINST GRAFT VERSUS HOST DISEASE
     Route: 048
     Dates: start: 20120418
  8. SELBEX [Concomitant]
     Active Substance: TEPRENONE
     Indication: GASTRITIS PROPHYLAXIS
     Dosage: 60 MG, UNK
     Route: 048
     Dates: start: 20120815
  9. BEZAFIBRATE [Concomitant]
     Active Substance: BEZAFIBRATE
     Indication: HYPERLIPIDAEMIA
     Dosage: 200 MG, UNK
     Route: 048
     Dates: start: 20120719, end: 20131212
  10. TASIGNA [Suspect]
     Active Substance: NILOTINIB
     Indication: ACUTE LYMPHOCYTIC LEUKAEMIA
     Dosage: 300 MG, DAILY
     Route: 048
     Dates: start: 20120815
  11. BEZAFIBRATE [Concomitant]
     Active Substance: BEZAFIBRATE
     Indication: GRAFT VERSUS HOST DISEASE IN LIVER

REACTIONS (3)
  - Drug administered to patient of inappropriate age [Unknown]
  - Body height below normal [Not Recovered/Not Resolved]
  - Failure to thrive [Unknown]

NARRATIVE: CASE EVENT DATE: 201211
